FAERS Safety Report 15248315 (Version 1)
Quarter: 2018Q3

REPORT INFORMATION
  Report Type: Spontaneous
  Country: US (occurrence: US)
  Receive Date: 20180715
  Receipt Date: 20180715
  Transmission Date: 20181010
  Serious: Yes (Hospitalization)
  Sender: FDA-Public Use
  Company Number: None

PATIENT
  Age: 41 Year
  Sex: Female
  Weight: 85.05 kg

DRUGS (6)
  1. LISINOPRO [Concomitant]
  2. GRALISE [Suspect]
     Active Substance: GABAPENTIN
     Indication: BACK PAIN
     Dosage: ?          QUANTITY:3 TABLET(S);?
     Route: 048
     Dates: start: 20180615, end: 20180714
  3. POTASSIUM [Concomitant]
     Active Substance: POTASSIUM
  4. ATORVESTATAN [Concomitant]
  5. PHENTERMINE. [Concomitant]
     Active Substance: PHENTERMINE
  6. MAGNESIUM [Concomitant]
     Active Substance: MAGNESIUM

REACTIONS (7)
  - Suspected product contamination [None]
  - Hypoaesthesia [None]
  - Dizziness [None]
  - Product lot number issue [None]
  - Nausea [None]
  - Suspected counterfeit product [None]
  - Panic attack [None]

NARRATIVE: CASE EVENT DATE: 20180713
